FAERS Safety Report 5578045-8 (Version None)
Quarter: 2007Q4

REPORT INFORMATION
  Report Type: 
  Country: None (occurrence: None)
  Receive Date: 20071227
  Receipt Date: 20071218
  Transmission Date: 20080405
  Serious: Yes (Hospitalization)
  Sender: FDA-Public Use
  Company Number: 14017792

PATIENT
  Age: 61 Year
  Sex: Male

DRUGS (3)
  1. ORACEFAL (CEFADROXIL MONOHYDRATE) [Suspect]
     Dosage: ORAL
     Route: 048
     Dates: start: 20071112, end: 20071115
  2. DEXTROMETHOPRHAN (DEXTROMETHORPHAN) [Concomitant]
  3. OZOTHINE (OZOTHINE) [Concomitant]

REACTIONS (3)
  - ANAEMIA [None]
  - BLOOD BLISTER [None]
  - THROMBOCYTOPENIA [None]
